FAERS Safety Report 12953882 (Version 2)
Quarter: 2021Q1

REPORT INFORMATION
  Report Type: Spontaneous
  Country: CA (occurrence: CA)
  Receive Date: 20161118
  Receipt Date: 20210208
  Transmission Date: 20210419
  Serious: Yes (Hospitalization)
  Sender: FDA-Public Use
  Company Number: CA-009507513-1611CAN005873

PATIENT
  Age: 71 Year
  Sex: Female
  Weight: 63.49 kg

DRUGS (5)
  1. TECTA [Concomitant]
     Active Substance: PANTOPRAZOLE MAGNESIUM
     Dosage: 40 MG PER DAY; REPORTED AS TABLET (ENTERIC?COATED)
     Route: 048
  2. FOSAMAX [Suspect]
     Active Substance: ALENDRONATE SODIUM
     Indication: OSTEOPOROSIS
     Dosage: 10 MG, 1 EVERY 1 DAY(S) (QD)
     Route: 048
     Dates: start: 19970409, end: 20140723
  3. IMIPRAMINE [Concomitant]
     Active Substance: IMIPRAMINE
     Dosage: 200 MG PER DAY
     Route: 048
  4. IRBESARTAN. [Concomitant]
     Active Substance: IRBESARTAN
     Dosage: 150 MG PER DAY
     Route: 048
  5. MAXALT [Concomitant]
     Active Substance: RIZATRIPTAN BENZOATE
     Dosage: UNK, AS NEEDED (PRN)
     Route: 048

REACTIONS (4)
  - Femur fracture [Recovering/Resolving]
  - Atypical femur fracture [Recovering/Resolving]
  - Pain in extremity [Recovering/Resolving]
  - Internal fixation of fracture [Recovering/Resolving]

NARRATIVE: CASE EVENT DATE: 2012
